FAERS Safety Report 21088822 (Version 1)
Quarter: 2022Q3

REPORT INFORMATION
  Report Type: Spontaneous
  Country: JP (occurrence: JP)
  Receive Date: 20220715
  Receipt Date: 20220715
  Transmission Date: 20221027
  Serious: Yes (Death, Life-Threatening)
  Sender: FDA-Public Use
  Company Number: JP-TAIHO-TT220203_P_1

PATIENT
  Age: 69 Year
  Sex: Male
  Weight: 63.3 kg

DRUGS (20)
  1. LONSURF [Suspect]
     Active Substance: TIPIRACIL HYDROCHLORIDE\TRIFLURIDINE
     Indication: Rectal cancer metastatic
     Dosage: ON DAYS 1-5 AND 8-12 OF EACH 28-DAY CYCLE, CYCLE 1
     Route: 048
     Dates: start: 20220318
  2. LONSURF [Suspect]
     Active Substance: TIPIRACIL HYDROCHLORIDE\TRIFLURIDINE
     Dosage: ON DAYS 1-5 AND 8-12 OF EACH 28-DAY CYCLE, CYCLE 2
     Route: 048
     Dates: start: 20220513, end: 20220524
  3. BEVACIZUMAB [Suspect]
     Active Substance: BEVACIZUMAB
     Indication: Rectal cancer metastatic
     Dosage: CYCLE 1
     Route: 041
     Dates: start: 20220317, end: 20220317
  4. BEVACIZUMAB [Suspect]
     Active Substance: BEVACIZUMAB
     Dosage: CYCLE 2
     Route: 041
     Dates: start: 20220512, end: 20220512
  5. CALONAL [Suspect]
     Active Substance: ACETAMINOPHEN
     Indication: Pain
     Route: 048
     Dates: start: 20200909, end: 20220610
  6. ESZOPICLONE [Suspect]
     Active Substance: ESZOPICLONE
     Indication: Insomnia
     Route: 048
     Dates: start: 20200911, end: 20220609
  7. CASANTHRANOL\DOCUSATE SODIUM [Suspect]
     Active Substance: CASANTHRANOL\DOCUSATE SODIUM
     Indication: Constipation
     Route: 048
     Dates: start: 20200911, end: 20220609
  8. ELOBIXIBAT [Suspect]
     Active Substance: ELOBIXIBAT
     Indication: Constipation
     Route: 048
     Dates: start: 20200919, end: 20220610
  9. HERBALS [Suspect]
     Active Substance: HERBALS
     Indication: Malaise
     Route: 048
     Dates: start: 20201212, end: 20220610
  10. HERBALS [Suspect]
     Active Substance: HERBALS
     Indication: Hypoaesthesia
  11. LOXOPROFEN [Suspect]
     Active Substance: LOXOPROFEN
     Indication: Pain
     Route: 048
     Dates: start: 20210108, end: 20220610
  12. CYTOTEC [Suspect]
     Active Substance: MISOPROSTOL
     Indication: Gastrointestinal ulcer
     Route: 048
     Dates: start: 20210108, end: 20220610
  13. PYRIDOXAL [Suspect]
     Active Substance: PYRIDOXAL
     Indication: Hypoaesthesia
     Route: 048
     Dates: start: 20210108, end: 20220610
  14. CODEINE PHOSPHATE [Suspect]
     Active Substance: CODEINE PHOSPHATE
     Indication: Cough
     Route: 048
     Dates: start: 20220113, end: 20220610
  15. TRICHLORMETHIAZIDE [Suspect]
     Active Substance: TRICHLORMETHIAZIDE
     Indication: Ascites
     Route: 048
     Dates: start: 20220502, end: 20220613
  16. FUROSEMIDE [Suspect]
     Active Substance: FUROSEMIDE
     Indication: Ascites
     Route: 048
     Dates: start: 20220512, end: 20220613
  17. MAGNESIUM OXIDE [Suspect]
     Active Substance: MAGNESIUM OXIDE
     Indication: Constipation
     Route: 048
     Dates: end: 20220610
  18. FEBUXOSTAT [Suspect]
     Active Substance: FEBUXOSTAT
     Indication: Hyperuricaemia
     Route: 048
     Dates: end: 20220610
  19. FEBUXOSTAT [Suspect]
     Active Substance: FEBUXOSTAT
     Indication: Gout
  20. VANCOMYCIN [Suspect]
     Active Substance: VANCOMYCIN
     Indication: Pneumonia bacterial
     Route: 041
     Dates: start: 20220602, end: 20220606

REACTIONS (6)
  - Interstitial lung disease [Fatal]
  - Leukopenia [Recovered/Resolved]
  - Neutropenia [Recovered/Resolved]
  - Thrombocytopenia [Not Recovered/Not Resolved]
  - Pneumonia bacterial [Unknown]
  - Lymphangiosis carcinomatosa [Fatal]

NARRATIVE: CASE EVENT DATE: 20220527
